FAERS Safety Report 5473585-4 (Version None)
Quarter: 2007Q4

REPORT INFORMATION
  Report Type: 
  Country: None (occurrence: None)
  Receive Date: 20071001
  Receipt Date: 20070716
  Transmission Date: 20080405
  Serious: No
  Sender: FDA-Public Use
  Company Number: US-ASTRAZENECA-2007UW11268

PATIENT
  Age: 76 Year
  Sex: Female
  Weight: 65 kg

DRUGS (4)
  1. ARIMIDEX [Suspect]
     Indication: BREAST CANCER
     Route: 048
     Dates: start: 20060201, end: 20070515
  2. ACTONEL [Concomitant]
  3. CALCIUM [Concomitant]
  4. BLOOD PRESSURE MEDICATION [Concomitant]

REACTIONS (3)
  - BONE DENSITY DECREASED [None]
  - HYPERTENSION [None]
  - OSTEOPOROSIS [None]
